FAERS Safety Report 5661747-2 (Version None)
Quarter: 2008Q1

REPORT INFORMATION
  Report Type: 
  Country: None (occurrence: None)
  Receive Date: 20080306
  Receipt Date: 20080221
  Transmission Date: 20080703
  Serious: Yes (Death, Hospitalization)
  Sender: FDA-Public Use
  Company Number: 430004L08ITA

PATIENT
  Age: 27 Year
  Sex: Male

DRUGS (1)
  1. NOVANTRONE [Suspect]
     Indication: MULTIPLE SCLEROSIS
     Dosage: 80 MG/M2, 1 IN 1 MONTHS
     Dates: start: 20040901, end: 20050701

REACTIONS (3)
  - ACUTE PROMYELOCYTIC LEUKAEMIA [None]
  - CEREBRAL HAEMORRHAGE [None]
  - TREATMENT RELATED SECONDARY MALIGNANCY [None]
